FAERS Safety Report 5834899-9 (Version None)
Quarter: 2008Q3

REPORT INFORMATION
  Report Type: 
  Country: None (occurrence: None)
  Receive Date: 20080806
  Receipt Date: 20080728
  Transmission Date: 20090109
  Serious: Yes (Other)
  Sender: FDA-Public Use
  Company Number: US-BAYER-200812220BCC

PATIENT
  Age: 44 Year
  Sex: Female
  Weight: 120 kg

DRUGS (3)
  1. ALEVE [Suspect]
     Indication: CARPAL TUNNEL SYNDROME
     Dosage: UNIT DOSE: 220 MG
     Route: 048
     Dates: start: 20080501, end: 20080602
  2. FORTAMET [Concomitant]
  3. ALDACTONE [Concomitant]

REACTIONS (2)
  - ANAL HAEMORRHAGE [None]
  - BOWEL MOVEMENT IRREGULARITY [None]
